FAERS Safety Report 10753454 (Version 1)
Quarter: 2015Q1

REPORT INFORMATION
  Report Type: Spontaneous
  Country: SA (occurrence: SA)
  Receive Date: 20150131
  Receipt Date: 20150131
  Transmission Date: 20150721
  Serious: Yes (Hospitalization)
  Sender: FDA-Public Use
  Company Number: SA-INDICUS PHARMA-000299

PATIENT
  Age: 55 Year
  Sex: Female

DRUGS (1)
  1. METFORMIN [Suspect]
     Active Substance: METFORMIN HYDROCHLORIDE
     Indication: TYPE 2 DIABETES MELLITUS

REACTIONS (4)
  - Hypoglycaemia [Recovered/Resolved]
  - Nephrolithiasis [Unknown]
  - Acute kidney injury [Recovering/Resolving]
  - Lactic acidosis [Recovered/Resolved]
